FAERS Safety Report 6024916-8 (Version None)
Quarter: 2008Q4

REPORT INFORMATION
  Report Type: 
  Country: None (occurrence: None)
  Receive Date: 20081222
  Receipt Date: 20080917
  Transmission Date: 20090506
  Serious: No
  Sender: FDA-Public Use
  Company Number: ALL1-2008-02688

PATIENT

DRUGS (1)
  1. VYVANSE [Suspect]
     Dosage: 30 MG, ORAL
     Route: 048
     Dates: start: 20070101

REACTIONS (1)
  - DRUG INEFFECTIVE [None]
